FAERS Safety Report 24888912 (Version 1)
Quarter: 2025Q1

REPORT INFORMATION
  Report Type: Report from Study
  Country: TR (occurrence: TR)
  Receive Date: 20250127
  Receipt Date: 20250127
  Transmission Date: 20250408
  Serious: Yes (Death, Other)
  Sender: CHEPLAPHARM
  Company Number: TR-CHEPLA-2025000993

PATIENT
  Age: 3 Month
  Sex: Female

DRUGS (1)
  1. GANCICLOVIR [Suspect]
     Active Substance: GANCICLOVIR
     Indication: Cytomegalovirus infection

REACTIONS (9)
  - Multiple organ dysfunction syndrome [Fatal]
  - Sepsis [Fatal]
  - Amino acid metabolism disorder [Unknown]
  - Ascites [Unknown]
  - Thrombocytopenia [Unknown]
  - Skin exfoliation [Unknown]
  - Neurodevelopmental delay [Unknown]
  - Hepatosplenomegaly [Unknown]
  - Off label use [Recovered/Resolved]
